FAERS Safety Report 16654464 (Version 1)
Quarter: 2019Q3

REPORT INFORMATION
  Report Type: Spontaneous
  Country: PL (occurrence: PL)
  Receive Date: 20190731
  Receipt Date: 20190731
  Transmission Date: 20191004
  Serious: Yes (Hospitalization)
  Sender: FDA-Public Use
  Company Number: PL-ASTRAZENECA-2019SF05824

PATIENT
  Age: 69 Year
  Sex: Male

DRUGS (1)
  1. QUETIAPINE FUMARATE. [Suspect]
     Active Substance: QUETIAPINE FUMARATE
     Indication: DELUSION
     Dosage: 250.0MG UNKNOWN
     Route: 048
     Dates: start: 20150821, end: 20150911

REACTIONS (2)
  - Blister [Unknown]
  - Erythema [Unknown]

NARRATIVE: CASE EVENT DATE: 20150909
